FAERS Safety Report 23500177 (Version 2)
Quarter: 2024Q1

REPORT INFORMATION
  Report Type: Spontaneous
  Country: US (occurrence: US)
  Receive Date: 20240208
  Receipt Date: 20240214
  Transmission Date: 20240410
  Serious: Yes (Other)
  Sender: FDA-Public Use
  Company Number: US-BRISTOL-MYERS SQUIBB COMPANY-2024-020459

PATIENT
  Age: 77 Year
  Sex: Female

DRUGS (1)
  1. REVLIMID [Suspect]
     Active Substance: LENALIDOMIDE
     Indication: Plasma cell myeloma
     Dosage: TAKE 1 CAPSULE WHOLE BY MOUTH WITH WATER, W/ OR W/O FOOD, AT AROUND SAME TIME DAILY
     Route: 048
     Dates: start: 20230727, end: 20240101

REACTIONS (2)
  - Influenza [Not Recovered/Not Resolved]
  - Sinusitis [Not Recovered/Not Resolved]
